FAERS Safety Report 14128509 (Version 2)
Quarter: 2018Q2

REPORT INFORMATION
  Report Type: Spontaneous
  Country: RU (occurrence: RU)
  Receive Date: 20171026
  Receipt Date: 20180516
  Transmission Date: 20180711
  Serious: Yes (Hospitalization, Other)
  Sender: FDA-Public Use
  Company Number: RU-ASTRAZENECA-2017SF08033

PATIENT
  Age: 69 Year
  Sex: Female

DRUGS (15)
  1. OMEZ [Concomitant]
     Active Substance: OMEPRAZOLE
  2. ATARAX [Concomitant]
     Active Substance: HYDROXYZINE HYDROCHLORIDE
  3. ACTOVEGIN [Concomitant]
     Active Substance: BLOOD, BOVINE
  4. BRILINTA [Suspect]
     Active Substance: TICAGRELOR
     Indication: MYOCARDIAL INFARCTION
     Route: 048
     Dates: start: 201701, end: 201802
  5. ROSUVASTATIN. [Concomitant]
     Active Substance: ROSUVASTATIN
  6. LISINOPRIL. [Concomitant]
     Active Substance: LISINOPRIL
  7. MEXIDOL [Concomitant]
  8. BRILINTA [Suspect]
     Active Substance: TICAGRELOR
     Indication: MYOCARDIAL INFARCTION
     Route: 048
     Dates: start: 20160201
  9. ASPIRIN CARDIO [Concomitant]
     Active Substance: ASPIRIN
  10. VALSARTAN. [Concomitant]
     Active Substance: VALSARTAN
  11. CARDICET [Concomitant]
  12. BETALOC ZOK [Concomitant]
     Active Substance: METOPROLOL SUCCINATE
  13. XANAX [Concomitant]
     Active Substance: ALPRAZOLAM
  14. AMLODIPINE [Concomitant]
     Active Substance: AMLODIPINE BESYLATE
  15. DIUVER [Concomitant]
     Active Substance: TORSEMIDE

REACTIONS (17)
  - Intentional product misuse [Recovered/Resolved]
  - Decreased appetite [Not Recovered/Not Resolved]
  - Musculoskeletal pain [Not Recovered/Not Resolved]
  - Dyspnoea exertional [Not Recovered/Not Resolved]
  - Cough [Not Recovered/Not Resolved]
  - Hypersensitivity [Unknown]
  - Dyspnoea [Not Recovered/Not Resolved]
  - Hypertensive crisis [Recovered/Resolved]
  - Asthenia [Not Recovered/Not Resolved]
  - Blood pressure increased [Unknown]
  - Pruritus [Not Recovered/Not Resolved]
  - Dizziness [Not Recovered/Not Resolved]
  - Tachycardia [Not Recovered/Not Resolved]
  - Pain in extremity [Not Recovered/Not Resolved]
  - Weight decreased [Not Recovered/Not Resolved]
  - Fall [Unknown]
  - Contusion [Not Recovered/Not Resolved]

NARRATIVE: CASE EVENT DATE: 2017
